FAERS Safety Report 11680517 (Version 2)
Quarter: 2015Q4

REPORT INFORMATION
  Report Type: Spontaneous
  Country: US (occurrence: US)
  Receive Date: 20151027
  Receipt Date: 20151104
  Transmission Date: 20160304
  Serious: No
  Sender: FDA-Public Use
  Company Number: US-ELI_LILLY_AND_COMPANY-US201010000782

PATIENT
  Sex: Female

DRUGS (1)
  1. FORTEO [Suspect]
     Active Substance: TERIPARATIDE
     Indication: OSTEOPOROSIS
     Dosage: 20 UG, DAILY (1/D)
     Dates: start: 2010

REACTIONS (15)
  - Muscular weakness [Unknown]
  - Feeling hot [Recovered/Resolved]
  - Arthralgia [Not Recovered/Not Resolved]
  - Weight decreased [Unknown]
  - Pruritus [Recovered/Resolved]
  - Fatigue [Recovered/Resolved]
  - Headache [Recovered/Resolved]
  - Limb discomfort [Unknown]
  - Eating disorder [Recovered/Resolved]
  - Musculoskeletal discomfort [Unknown]
  - Muscle spasms [Not Recovered/Not Resolved]
  - Malaise [Recovered/Resolved]
  - Pain in extremity [Unknown]
  - Nausea [Recovered/Resolved]
  - Injection site erythema [Not Recovered/Not Resolved]
